FAERS Safety Report 20756093 (Version 1)
Quarter: 2022Q2

REPORT INFORMATION
  Report Type: Spontaneous
  Country: US (occurrence: None)
  Receive Date: 20220426
  Receipt Date: 20220426
  Transmission Date: 20220720
  Serious: No
  Sender: FDA-Public Use
  Company Number: None

PATIENT
  Age: 65 Year
  Sex: Female
  Weight: 75.75 kg

DRUGS (9)
  1. MEKINIST [Suspect]
     Active Substance: TRAMETINIB DIMETHYL SULFOXIDE
  2. AMLODIPINE [Concomitant]
     Active Substance: AMLODIPINE BESYLATE
  3. MINERALS\VITAMINS [Concomitant]
     Active Substance: MINERALS\VITAMINS
  4. DOXAZOSIN [Concomitant]
     Active Substance: DOXAZOSIN MESYLATE
  5. IBUPROFEN [Concomitant]
     Active Substance: IBUPROFEN
  6. LUMIGAN [Concomitant]
     Active Substance: BIMATOPROST
  7. METOPROLOL [Concomitant]
     Active Substance: METOPROLOL
  8. NOVOLOG [Concomitant]
     Active Substance: INSULIN ASPART
  9. TYLENOL [Concomitant]
     Active Substance: ACETAMINOPHEN

REACTIONS (4)
  - Rash [None]
  - Stomatitis [None]
  - Eye swelling [None]
  - Drug hypersensitivity [None]
